FAERS Safety Report 16183081 (Version 1)
Quarter: 2019Q2

REPORT INFORMATION
  Report Type: Spontaneous
  Country: IT (occurrence: IT)
  Receive Date: 20190411
  Receipt Date: 20190411
  Transmission Date: 20190711
  Serious: Yes (Other)
  Sender: FDA-Public Use
  Company Number: IT-TEVA-2019-IT-1035165

PATIENT
  Age: 88 Year
  Sex: Female

DRUGS (6)
  1. DIBASE [Concomitant]
     Active Substance: CHOLECALCIFEROL
  2. LASIX [Concomitant]
     Active Substance: FUROSEMIDE
  3. MONURIL [Concomitant]
     Active Substance: FOSFOMYCIN TROMETHAMINE
  4. CLEXANE 4.000 U.I. AXA/0,4 ML SOLUZIONE INIETTABILE [Concomitant]
  5. OPTINATE [Concomitant]
     Active Substance: RISEDRONATE SODIUM
  6. BISOPROLOL HEMIFUMARATE [Suspect]
     Active Substance: BISOPROLOL FUMARATE
     Indication: PRODUCT USED FOR UNKNOWN INDICATION
     Dosage: 2.5 DOSAGE FORMS DAILY;
     Route: 048
     Dates: start: 20190101, end: 20190302

REACTIONS (2)
  - Bradycardia [Unknown]
  - Loss of consciousness [Unknown]

NARRATIVE: CASE EVENT DATE: 20190302
